FAERS Safety Report 4661805-5 (Version None)
Quarter: 2005Q2

REPORT INFORMATION
  Report Type: 
  Country: None (occurrence: None)
  Receive Date: 20050512
  Receipt Date: 20050512
  Transmission Date: 20051028
  Serious: Yes (Life-Threatening)
  Sender: FDA-Public Use
  Company Number: None

PATIENT
  Age: 27 Year
  Sex: Female
  Weight: 74.5 kg

DRUGS (1)
  1. HALOPERIDOL [Suspect]
     Indication: AGITATION

REACTIONS (3)
  - DYSPNOEA [None]
  - DYSTONIA [None]
  - SWOLLEN TONGUE [None]
